FAERS Safety Report 9690785 (Version 1)
Quarter: 2013Q4

REPORT INFORMATION
  Report Type: Spontaneous
  Country: IT (occurrence: IT)
  Receive Date: 20131115
  Receipt Date: 20131115
  Transmission Date: 20140711
  Serious: Yes (Hospitalization)
  Sender: FDA-Public Use
  Company Number: IT-PFIZER INC-2013319021

PATIENT
  Age: 57 Year
  Sex: Male

DRUGS (8)
  1. CISPLATINO TEVA [Suspect]
     Indication: GASTRIC CANCER
     Dosage: 135 MG, DAILY, CYCLIC
     Route: 042
     Dates: start: 20130927, end: 20131023
  2. FLUOROURACIL ^TEVA^ [Suspect]
     Indication: GASTRIC CANCER
     Dosage: 6890 MG,  DAILY, CYCLIC
     Route: 042
     Dates: start: 20130927, end: 20131023
  3. DOCETAXEL [Suspect]
     Indication: GASTRIC CANCER
     Dosage: 135 MG, DAILY, CYCLIC
     Route: 042
     Dates: start: 20130927, end: 20131023
  4. APREPITANT [Concomitant]
     Dosage: 125 MG, FIRST DAY
  5. APREPITANT [Concomitant]
     Dosage: 80 MG, SECOND AND THIRD DAYS
  6. DEXAMETHASONE PHOSPHATE [Concomitant]
     Dosage: 12 MG, DAILY
  7. ZARZIO [Concomitant]
     Indication: PROPHYLAXIS
     Dosage: 1 DF, DAILY
     Route: 058
     Dates: start: 20131017, end: 20131023
  8. ALOXI [Concomitant]
     Dosage: 250 UG, DAILY
     Route: 042

REACTIONS (4)
  - Nausea [Recovered/Resolved]
  - Neutropenia [Recovered/Resolved]
  - Vomiting [Recovered/Resolved]
  - Stomatitis [Recovered/Resolved]
